FAERS Safety Report 14039572 (Version 5)
Quarter: 2018Q1

REPORT INFORMATION
  Report Type: Spontaneous
  Country: JP (occurrence: JP)
  Receive Date: 20171004
  Receipt Date: 20180216
  Transmission Date: 20180508
  Serious: Yes (Hospitalization, Other)
  Sender: FDA-Public Use
  Company Number: JP-GLAXOSMITHKLINE-JP2017JPN151298

PATIENT
  Age: 54 Year
  Sex: Female

DRUGS (7)
  1. LITHIUM CARBONATE. [Concomitant]
     Active Substance: LITHIUM CARBONATE
     Dosage: 600 MG, 1D
     Dates: end: 20170921
  2. BENZALIN (JAPAN) [Concomitant]
     Active Substance: NITRAZEPAM
     Indication: INSOMNIA
     Dosage: 10 MG, QD
  3. LAMICTAL [Suspect]
     Active Substance: LAMOTRIGINE
     Dosage: 50 MG, QD
     Route: 048
     Dates: start: 20170810, end: 20170823
  4. TETRAMIDE [Concomitant]
     Active Substance: MIANSERIN
     Dosage: 30 MG, 1D
  5. LAMICTAL [Suspect]
     Active Substance: LAMOTRIGINE
     Indication: BIPOLAR DISORDER
     Dosage: 25 MG, QD
     Route: 048
     Dates: start: 20170727, end: 20170809
  6. LAMICTAL [Suspect]
     Active Substance: LAMOTRIGINE
     Dosage: 100 MG, QD
     Route: 048
     Dates: start: 20170824, end: 20170906
  7. RESTAS [Concomitant]
     Active Substance: FLUTOPRAZEPAM
     Dosage: 2 MG, 1D

REACTIONS (10)
  - Erythema [Unknown]
  - Enanthema [Recovering/Resolving]
  - Lip erosion [Unknown]
  - Drug reaction with eosinophilia and systemic symptoms [Recovering/Resolving]
  - Malaise [Recovering/Resolving]
  - Pyrexia [Unknown]
  - Coating in mouth [Unknown]
  - Rash [Recovering/Resolving]
  - Oral mucosa erosion [Unknown]
  - Rash maculo-papular [Unknown]

NARRATIVE: CASE EVENT DATE: 2017
